FAERS Safety Report 20210853 (Version 1)
Quarter: 2021Q4

REPORT INFORMATION
  Report Type: Spontaneous
  Country: CH (occurrence: None)
  Receive Date: 20211221
  Receipt Date: 20211221
  Transmission Date: 20220303
  Serious: Yes (Other)
  Sender: FDA-Public Use
  Company Number: CH-ROCHE-2981489

PATIENT
  Sex: Male

DRUGS (7)
  1. RITUXIMAB [Suspect]
     Active Substance: RITUXIMAB
     Indication: Diffuse large B-cell lymphoma
     Dosage: 2L RITUXIMAB- ESAP
     Route: 065
     Dates: start: 2004
  2. RITUXIMAB [Suspect]
     Active Substance: RITUXIMAB
     Dosage: 3L RITUXIMAB-GEMOX
     Route: 065
     Dates: start: 202106
  3. RITUXIMAB [Suspect]
     Active Substance: RITUXIMAB
     Dosage: 5L RITUXIMAB-BAC
     Route: 065
     Dates: start: 2021
  4. GEMCITABINE [Concomitant]
     Active Substance: GEMCITABINE
     Indication: Diffuse large B-cell lymphoma
     Dosage: 3L RITUXIMAB-GEMOX
     Dates: start: 202106
  5. OXALIPLATIN [Concomitant]
     Active Substance: OXALIPLATIN
     Indication: Diffuse large B-cell lymphoma
     Dosage: 3L RITUXIMAB-GEMOX
     Dates: start: 202106
  6. BENDAMUSTINE [Concomitant]
     Active Substance: BENDAMUSTINE
     Indication: Diffuse large B-cell lymphoma
     Dosage: 5L RITUXIMAB-BAC
     Dates: start: 2021
  7. CYTARABINE [Concomitant]
     Active Substance: CYTARABINE
     Indication: Diffuse large B-cell lymphoma
     Dosage: 5L RITUXIMAB-BAC
     Dates: start: 2021

REACTIONS (1)
  - Disease progression [Unknown]
